FAERS Safety Report 23303529 (Version 1)
Quarter: 2023Q4

REPORT INFORMATION
  Report Type: Spontaneous
  Country: JP (occurrence: JP)
  Receive Date: 20231215
  Receipt Date: 20231215
  Transmission Date: 20240110
  Serious: Yes (Hospitalization, Other)
  Sender: FDA-Public Use
  Company Number: JP-GLAXOSMITHKLINE-JP2023JPN173573

PATIENT

DRUGS (1)
  1. DAPRODUSTAT [Suspect]
     Active Substance: DAPRODUSTAT
     Indication: Nephrogenic anaemia
     Dosage: UNK, HIGH DOSE

REACTIONS (9)
  - Cerebral infarction [Recovered/Resolved]
  - Pancreatitis acute [Unknown]
  - Embolism [Unknown]
  - Incoherent [Unknown]
  - Dyslalia [Unknown]
  - Muscular weakness [Unknown]
  - Disorientation [Unknown]
  - Venous thrombosis limb [Unknown]
  - Venous thrombosis [Unknown]
